FAERS Safety Report 17360775 (Version 1)
Quarter: 2020Q1

REPORT INFORMATION
  Report Type: Other
  Country: US (occurrence: US)
  Receive Date: 20200203
  Receipt Date: 20200203
  Transmission Date: 20200409
  Serious: Yes (Life-Threatening, Hospitalization, Other)
  Sender: FDA-Public Use
  Company Number: US-MSN LABORATORIES PRIVATE LIMITED-2079719

PATIENT
  Age: 62 Year
  Sex: Female

DRUGS (1)
  1. ATORVASTATIN CALCIUM. [Suspect]
     Active Substance: ATORVASTATIN CALCIUM
     Indication: HYPERLIPIDAEMIA
     Route: 065

REACTIONS (7)
  - Myalgia [Unknown]
  - Respiratory failure [Recovered/Resolved]
  - Fall [Unknown]
  - Dysphagia [Unknown]
  - Immune-mediated myositis [Unknown]
  - Asthenia [Recovering/Resolving]
  - Dysphonia [Unknown]
